FAERS Safety Report 6104428-3 (Version None)
Quarter: 2009Q1

REPORT INFORMATION
  Report Type: 
  Country: None (occurrence: None)
  Receive Date: 20090305
  Receipt Date: 20090224
  Transmission Date: 20090719
  Serious: Yes (Other)
  Sender: FDA-Public Use
  Company Number: GR-JNJFOC-20090205911

PATIENT
  Sex: Female

DRUGS (1)
  1. TOPAMAC [Suspect]
     Indication: ACCIDENTAL EXPOSURE
     Route: 048

REACTIONS (5)
  - ACCIDENTAL EXPOSURE [None]
  - BRADYCARDIA [None]
  - SEDATION [None]
  - SOMNOLENCE [None]
  - VISUAL IMPAIRMENT [None]
